FAERS Safety Report 10336869 (Version 2)
Quarter: 2014Q3

REPORT INFORMATION
  Report Type: Report from Study
  Country: NL (occurrence: NL)
  Receive Date: 20140723
  Receipt Date: 20140723
  Transmission Date: 20150326
  Serious: Yes (Hospitalization)
  Sender: FDA-Public Use
  Company Number: NL-ABBVIE-13P-114-1183923-00

PATIENT
  Age: 37 Year
  Sex: Female
  Weight: 110 kg

DRUGS (5)
  1. LUCRIN 11.25 MG [Suspect]
     Active Substance: LEUPROLIDE ACETATE
     Indication: CYST
     Dates: start: 20140716
  2. LUCRIN 3.75 MG [Suspect]
     Active Substance: LEUPROLIDE ACETATE
     Indication: CYST
     Route: 058
     Dates: start: 20131122, end: 20131218
  3. PARACETAMOL [Concomitant]
     Active Substance: ACETAMINOPHEN
     Indication: ABDOMINAL PAIN
     Route: 048
  4. LUCRIN 11.25 MG [Suspect]
     Active Substance: LEUPROLIDE ACETATE
     Indication: ABDOMINAL PAIN
     Route: 058
     Dates: start: 20131219, end: 201403
  5. DICLOFENAC [Concomitant]
     Active Substance: DICLOFENAC
     Indication: ABDOMINAL PAIN
     Route: 048

REACTIONS (6)
  - Hot flush [Not Recovered/Not Resolved]
  - Arthralgia [Not Recovered/Not Resolved]
  - Depressed mood [Not Recovered/Not Resolved]
  - Depression [Unknown]
  - Cyst [Unknown]
  - Abdominal pain [Not Recovered/Not Resolved]

NARRATIVE: CASE EVENT DATE: 20131129
